FAERS Safety Report 25955368 (Version 1)
Quarter: 2025Q4

REPORT INFORMATION
  Report Type: Report from Study
  Country: US (occurrence: US)
  Receive Date: 20251024
  Receipt Date: 20251024
  Transmission Date: 20260117
  Serious: Yes (Hospitalization, Other)
  Sender: IPSEN BIOPHARMACEUTICALS, INC.
  Company Number: US-IPSEN Group, Research and Development-2024-14447

PATIENT
  Age: 68 Year
  Sex: Male
  Weight: 95.3 kg

DRUGS (19)
  1. ONIVYDE [Suspect]
     Active Substance: IRINOTECAN HYDROCHLORIDE
     Indication: Rectal cancer metastatic
     Dosage: DAYS 1 AND 15 OF 28 DAY CYCLE
     Route: 041
     Dates: start: 20240430
  2. ONIVYDE [Suspect]
     Active Substance: IRINOTECAN HYDROCHLORIDE
  3. BEVACIZUMAB [Suspect]
     Active Substance: BEVACIZUMAB
     Indication: Rectal cancer metastatic
     Dosage: DAYS 1 AND 15 OF 28 DAY CYCLE
     Route: 041
     Dates: start: 20240430
  4. LONSURF [Suspect]
     Active Substance: TIPIRACIL HYDROCHLORIDE\TRIFLURIDINE
     Indication: Rectal cancer metastatic
     Dosage: TWICE DAILY DAY 1 - 5 AND 15 - 19 OF A 28 DAY CYCLE
     Route: 048
  5. LONSURF [Suspect]
     Active Substance: TIPIRACIL HYDROCHLORIDE\TRIFLURIDINE
     Dosage: TWICE DAILY DAY 1 - 5 AND 15 - 19 OF A 28 DAY CYCLE
     Route: 048
  6. TYLENOL [Concomitant]
     Active Substance: ACETAMINOPHEN
  7. AMITRIPTYLINE HYDROCHLORIDE [Concomitant]
     Active Substance: AMITRIPTYLINE HYDROCHLORIDE
  8. VITAMIN D3 [Concomitant]
     Active Substance: CHOLECALCIFEROL
  9. NEURONTIN [Concomitant]
     Active Substance: GABAPENTIN
  10. NORCO [Concomitant]
     Active Substance: ACETAMINOPHEN\HYDROCODONE BITARTRATE
  11. LAXATIVE STOOL SOFTNER [Concomitant]
  12. MELATONIN [Concomitant]
     Active Substance: MELATONIN
  13. OMEGA-3 FATTY ACIDS [Concomitant]
     Active Substance: OMEGA-3 FATTY ACIDS
  14. PRILOSEC [Concomitant]
     Active Substance: OMEPRAZOLE MAGNESIUM
  15. VITAMIN B COMPLEX [Concomitant]
     Active Substance: CYANOCOBALAMIN\DEXPANTHENOL\NIACINAMIDE\PYRIDOXINE HYDROCHLORIDE\RIBOFLAVIN 5^-PHOSPHATE SODIUM\THIA
  16. SENOKOT [Concomitant]
     Active Substance: SENNOSIDES
  17. FULPHILA [Concomitant]
     Active Substance: PEGFILGRASTIM-JMDB
     Dates: start: 20240505, end: 20240625
  18. FOLATE SODIUM [Concomitant]
     Active Substance: FOLATE SODIUM
  19. METOPROLOL [Concomitant]
     Active Substance: METOPROLOL

REACTIONS (3)
  - Sepsis [Unknown]
  - Confusional state [Recovered/Resolved]
  - Leukocytosis [Recovered/Resolved]

NARRATIVE: CASE EVENT DATE: 20240717
